FAERS Safety Report 23389183 (Version 1)
Quarter: 2024Q1

REPORT INFORMATION
  Report Type: Spontaneous
  Country: CA (occurrence: CA)
  Receive Date: 20240110
  Receipt Date: 20240110
  Transmission Date: 20240410
  Serious: Yes (Hospitalization)
  Sender: FDA-Public Use
  Company Number: CA-FreseniusKabi-FK202400494

PATIENT
  Age: 80 Year
  Sex: Female

DRUGS (1)
  1. OXALIPLATIN [Suspect]
     Active Substance: OXALIPLATIN
     Indication: Product used for unknown indication
     Dosage: DOSE: 145 MILLIGRAM?DOSAGE FORM: SOLUTION INTRAVENOUS?UNKNOWN
     Route: 065

REACTIONS (5)
  - Dizziness [Recovering/Resolving]
  - Flushing [Recovering/Resolving]
  - Heart rate increased [Recovering/Resolving]
  - Pallor [Recovering/Resolving]
  - Unresponsive to stimuli [Recovering/Resolving]
